FAERS Safety Report 11239937 (Version 1)
Quarter: 2015Q3

REPORT INFORMATION
  Report Type: Spontaneous
  Country: US (occurrence: None)
  Receive Date: 20150701
  Receipt Date: 20150701
  Transmission Date: 20151125
  Serious: No
  Sender: FDA-Public Use
  Company Number: None

PATIENT

DRUGS (3)
  1. SODIUM CHLORIDE 0.9% [Suspect]
     Active Substance: SODIUM CHLORIDE
     Dosage: SINGLE DOSE VIAL
  2. STERILE WATER FOR INJECTION [Suspect]
     Active Substance: WATER
     Dosage: SINGLE DOSE VIAL
  3. CALCIUM GLUCONATE (CALCIUM GLUCONATE) [Suspect]
     Active Substance: CALCIUM GLUCONATE
     Dosage: 10 % (100MG/ML) SINGLE DOSE VIAL

REACTIONS (1)
  - Product container issue [None]
